FAERS Safety Report 23502411 (Version 1)
Quarter: 2024Q1

REPORT INFORMATION
  Report Type: Spontaneous
  Country: US (occurrence: US)
  Receive Date: 20240208
  Receipt Date: 20240208
  Transmission Date: 20240410
  Serious: Yes (Hospitalization)
  Sender: FDA-Public Use
  Company Number: US-INTRA-CELLULAR THERAPIES, INC.-2023ICT00020

PATIENT
  Sex: Female
  Weight: 72.109 kg

DRUGS (9)
  1. CAPLYTA [Suspect]
     Active Substance: LUMATEPERONE
     Indication: Bipolar disorder
     Dosage: 21 MG, 1X/DAY
     Route: 048
     Dates: start: 20221212, end: 2023
  2. CAPLYTA [Suspect]
     Active Substance: LUMATEPERONE
     Dosage: 10.5 MG, 1X/DAY
     Route: 048
     Dates: start: 2023
  3. LITHIUM [Concomitant]
     Active Substance: LITHIUM
  4. FLUOXETINE [Concomitant]
     Active Substance: FLUOXETINE HYDROCHLORIDE
  5. TRAZODONE [Concomitant]
     Active Substance: TRAZODONE HYDROCHLORIDE
  6. AUSTEDO [Concomitant]
     Active Substance: DEUTETRABENAZINE
  7. VITAMIN B COMPLEX [Concomitant]
     Active Substance: CYANOCOBALAMIN\DEXPANTHENOL\NIACINAMIDE\PYRIDOXINE HYDROCHLORIDE\RIBOFLAVIN 5^-PHOSPHATE SODIUM\THIA
  8. VITAMIN B12 [Concomitant]
     Active Substance: CYANOCOBALAMIN
  9. CALCIUM [Concomitant]
     Active Substance: CALCIUM

REACTIONS (4)
  - Somnolence [Not Recovered/Not Resolved]
  - Muscular weakness [Not Recovered/Not Resolved]
  - Back pain [Not Recovered/Not Resolved]
  - Decreased activity [Recovering/Resolving]

NARRATIVE: CASE EVENT DATE: 20230101
